FAERS Safety Report 8572661-7 (Version None)
Quarter: 2012Q3

REPORT INFORMATION
  Report Type: 
  Country: None (occurrence: None)
  Receive Date: 20120806
  Receipt Date: 20120525
  Transmission Date: 20120928
  Serious: No
  Sender: FDA-Public Use
  Company Number: US-009507513-2012SP024461

PATIENT

DRUGS (7)
  1. HYDROCHLOROTHIAZDE TAB [Concomitant]
     Indication: PRODUCT USED FOR UNKNOWN INDICATION
     Dosage: UNK UNK, UNKNOWN
  2. GABAPENTIN [Concomitant]
     Indication: NERVOUS SYSTEM DISORDER
     Dosage: UNK UNK, UNKNOWN
  3. ALPRAZOLAM [Concomitant]
     Indication: ANXIETY
     Dosage: UNK UNK, UNKNOWN
  4. MIRALAX [Suspect]
     Indication: INFREQUENT BOWEL MOVEMENTS
     Dosage: UNK UNK, UNKNOWN
     Route: 048
     Dates: start: 20120419
  5. NAPROXEN [Concomitant]
     Indication: PAIN
     Dosage: UNK UNK, UNKNOWN
  6. MIRALAX [Suspect]
     Indication: CONSTIPATION
  7. MIRALAX [Suspect]
     Indication: BOWEL MOVEMENT IRREGULARITY

REACTIONS (1)
  - DRUG INEFFECTIVE [None]
